FAERS Safety Report 5934196-7 (Version None)
Quarter: 2008Q4

REPORT INFORMATION
  Report Type: 
  Country: None (occurrence: None)
  Receive Date: 20081028
  Receipt Date: 20081028
  Transmission Date: 20090506
  Serious: Yes (Other)
  Sender: FDA-Public Use
  Company Number: None

PATIENT
  Age: 38 Year
  Sex: Female
  Weight: 78.9259 kg

DRUGS (1)
  1. SINGULAIR [Suspect]
     Indication: ASTHMA
     Dosage: 1 TABLET DAILY
     Dates: start: 20081010, end: 20081025

REACTIONS (4)
  - ABNORMAL DREAMS [None]
  - FEAR [None]
  - INSOMNIA [None]
  - PANIC ATTACK [None]
